FAERS Safety Report 13646366 (Version 1)
Quarter: 2017Q2

REPORT INFORMATION
  Report Type: Spontaneous
  Country: US (occurrence: US)
  Receive Date: 20170612
  Receipt Date: 20170612
  Transmission Date: 20170830
  Serious: Yes (Life-Threatening, Hospitalization)
  Sender: FDA-Public Use
  Company Number: None

PATIENT
  Age: 56 Year
  Sex: Male
  Weight: 115.58 kg

DRUGS (2)
  1. DABIGATRAN [Suspect]
     Active Substance: DABIGATRAN
     Indication: PULMONARY EMBOLISM
     Dates: start: 20170228, end: 20170515
  2. DABIGATRAN [Suspect]
     Active Substance: DABIGATRAN
     Indication: FACTOR V LEIDEN MUTATION
     Dates: start: 20170228, end: 20170515

REACTIONS (2)
  - Gastrooesophageal reflux disease [None]
  - Deep vein thrombosis [None]

NARRATIVE: CASE EVENT DATE: 20170516
